FAERS Safety Report 22227800 (Version 4)
Quarter: 2023Q2

REPORT INFORMATION
  Report Type: Spontaneous
  Country: CA (occurrence: CA)
  Receive Date: 20230419
  Receipt Date: 20230525
  Transmission Date: 20230722
  Serious: No
  Sender: FDA-Public Use
  Company Number: CA-PFIZER INC-202300154116

PATIENT
  Age: 17 Year
  Sex: Female

DRUGS (1)
  1. DEPO-PROVERA [Suspect]
     Active Substance: MEDROXYPROGESTERONE ACETATE
     Dosage: RECEIVED A QUARTER OF THE DOSE
     Dates: start: 20230411

REACTIONS (2)
  - Incorrect dose administered by device [Unknown]
  - Needle issue [Unknown]

NARRATIVE: CASE EVENT DATE: 20230411
